FAERS Safety Report 23596820 (Version 2)
Quarter: 2024Q2

REPORT INFORMATION
  Report Type: Spontaneous
  Country: US (occurrence: US)
  Receive Date: 20240305
  Receipt Date: 20240503
  Transmission Date: 20240715
  Serious: No
  Sender: FDA-Public Use
  Company Number: US-PFIZER INC-202400056393

PATIENT
  Age: 72 Year
  Sex: Female
  Weight: 87.075 kg

DRUGS (3)
  1. PAXLOVID [Suspect]
     Active Substance: NIRMATRELVIR\RITONAVIR
     Indication: COVID-19 treatment
     Dosage: 150 MG, 2X/DAY
     Dates: start: 20240225, end: 20240228
  2. ZYDUS [Concomitant]
     Dosage: UNK
     Dates: start: 20190101, end: 20240304
  3. ZYDUS [Concomitant]
     Dosage: UNK
     Dates: start: 20240225, end: 20240228

REACTIONS (2)
  - Rash [Recovered/Resolved]
  - Hypersensitivity [Recovered/Resolved]

NARRATIVE: CASE EVENT DATE: 20240227
